FAERS Safety Report 5494889-5 (Version None)
Quarter: 2007Q4

REPORT INFORMATION
  Report Type: 
  Country: None (occurrence: None)
  Receive Date: 20071022
  Receipt Date: 20071010
  Transmission Date: 20080405
  Serious: Yes (Other)
  Sender: FDA-Public Use
  Company Number: GXKR2007SE08784

PATIENT
  Age: 75 Year
  Sex: Female

DRUGS (1)
  1. METOPROLOL HEXAL (NGX)(METOPROLOL) UNKNOWN [Suspect]
     Indication: ARRHYTHMIA
     Dosage: ORAL
     Route: 048

REACTIONS (2)
  - SEPSIS [None]
  - URINARY TRACT INFECTION [None]
